FAERS Safety Report 17918913 (Version 2)
Quarter: 2020Q2

REPORT INFORMATION
  Report Type: Spontaneous
  Country: US (occurrence: US)
  Receive Date: 20200619
  Receipt Date: 20200623
  Transmission Date: 20200714
  Serious: No
  Sender: FDA-Public Use
  Company Number: US-PFIZER INC-2020237157

PATIENT
  Sex: Female

DRUGS (3)
  1. LENVIMA [Concomitant]
     Active Substance: LENVATINIB
     Indication: COLOSTOMY
     Dosage: 20 MG, DAILY
     Route: 048
     Dates: start: 20200120, end: 20200223
  2. LENVIMA [Concomitant]
     Active Substance: LENVATINIB
     Dosage: 14 MG, DAILY
     Route: 048
     Dates: start: 20200224
  3. NORVASC [Suspect]
     Active Substance: AMLODIPINE BESYLATE
     Dosage: UNK

REACTIONS (4)
  - Blood pressure increased [Unknown]
  - Thyroid function test abnormal [Unknown]
  - Dysphonia [Recovering/Resolving]
  - Weight decreased [Recovered/Resolved]

NARRATIVE: CASE EVENT DATE: 20200422
